FAERS Safety Report 6968968-7 (Version None)
Quarter: 2010Q3

REPORT INFORMATION
  Report Type: 
  Country: None (occurrence: None)
  Receive Date: 20100902
  Receipt Date: 20100825
  Transmission Date: 20110219
  Serious: Yes (Disabling)
  Sender: FDA-Public Use
  Company Number: IDA-00418

PATIENT
  Age: 50 Year
  Sex: Female

DRUGS (3)
  1. INDERAL [Suspect]
     Indication: DRUG WITHDRAWAL SYNDROME
     Dosage: 1 TABLET, BID, ORAL
     Route: 048
  2. DONNATAL (BELLADONNA ALKALOIDS, PHENOBARBITAL) [Concomitant]
  3. LIBRIUM [Concomitant]

REACTIONS (5)
  - ABASIA [None]
  - MOBILITY DECREASED [None]
  - PARALYSIS [None]
  - SENSATION OF HEAVINESS [None]
  - SENSATION OF PRESSURE [None]
